FAERS Safety Report 10160657 (Version 3)
Quarter: 2014Q2

REPORT INFORMATION
  Report Type: Report from Study
  Country: AU (occurrence: AU)
  Receive Date: 20140508
  Receipt Date: 20140626
  Transmission Date: 20141212
  Serious: Yes (Hospitalization, Disabling)
  Sender: FDA-Public Use
  Company Number: PHHY2014AU051585

PATIENT
  Age: 79 Year
  Sex: Female

DRUGS (3)
  1. ACLASTA [Suspect]
     Dosage: 5 MG
     Route: 042
     Dates: start: 20091211
  2. ACLASTA [Suspect]
     Dosage: 5 MG
     Route: 042
     Dates: start: 20120120
  3. ACLASTA [Suspect]
     Dosage: 5 MG
     Route: 042
     Dates: start: 20130415

REACTIONS (3)
  - Lumbar vertebral fracture [Not Recovered/Not Resolved]
  - Fractured coccyx [Not Recovered/Not Resolved]
  - Fall [Not Recovered/Not Resolved]
